FAERS Safety Report 24790591 (Version 2)
Quarter: 2025Q1

REPORT INFORMATION
  Report Type: Spontaneous
  Country: US (occurrence: US)
  Receive Date: 20241230
  Receipt Date: 20250203
  Transmission Date: 20250409
  Serious: No
  Sender: PFIZER
  Company Number: US-PFIZER INC-PV202400166727

PATIENT
  Age: 56 Year
  Sex: Female

DRUGS (32)
  1. ZOSYN [Suspect]
     Active Substance: PIPERACILLIN SODIUM\TAZOBACTAM SODIUM
  2. DUONEB [Concomitant]
     Active Substance: ALBUTEROL SULFATE\IPRATROPIUM BROMIDE
  3. MYCOSTATIN [Concomitant]
     Active Substance: NYSTATIN
  4. DULCOLAX (BISACODYL) [Concomitant]
     Active Substance: BISACODYL
  5. SIMETHICONE (DIMETHICONE) [Concomitant]
     Active Substance: DIMETHICONE
  6. TYLENOL [Concomitant]
     Active Substance: ACETAMINOPHEN
  7. PROAMATINE [Concomitant]
     Active Substance: MIDODRINE HYDROCHLORIDE
  8. OXYCODONE [Concomitant]
     Active Substance: OXYCODONE
  9. MUCOMYST [Concomitant]
     Active Substance: ACETYLCYSTEINE
  10. DESYREL [Concomitant]
     Active Substance: TRAZODONE HYDROCHLORIDE
  11. ZOFRAN [Concomitant]
     Active Substance: ONDANSETRON HYDROCHLORIDE
  12. NEXIUM I.V. [Concomitant]
     Active Substance: ESOMEPRAZOLE SODIUM
  13. RENVELA [Concomitant]
     Active Substance: SEVELAMER CARBONATE
  14. ROBITUSSIN (GUAIFENESIN) [Concomitant]
     Active Substance: GUAIFENESIN
  15. PROGRAF [Concomitant]
     Active Substance: TACROLIMUS
  16. PREDNISOLONE [Concomitant]
     Active Substance: PREDNISOLONE
  17. NEURONTIN [Concomitant]
     Active Substance: GABAPENTIN
  18. PULMOZYME [Concomitant]
     Active Substance: DORNASE ALFA
  19. XOPENEX [Concomitant]
     Active Substance: LEVALBUTEROL HYDROCHLORIDE
  20. EMEND [Concomitant]
     Active Substance: APREPITANT
  21. LEXAPRO [Concomitant]
     Active Substance: ESCITALOPRAM OXALATE
  22. MYFORTIC [Concomitant]
     Active Substance: MYCOPHENOLATE SODIUM
  23. ADMELOG [Concomitant]
     Active Substance: INSULIN LISPRO
  24. HUMALOG [Concomitant]
     Active Substance: INSULIN LISPRO
  25. COUMADIN [Concomitant]
     Active Substance: WARFARIN SODIUM
  26. KEPPRA [Concomitant]
     Active Substance: LEVETIRACETAM
  27. BACTRIM DS [Concomitant]
     Active Substance: SULFAMETHOXAZOLE\TRIMETHOPRIM
  28. VALCYTE [Concomitant]
     Active Substance: VALGANCICLOVIR HYDROCHLORIDE
  29. IMODIUM [Concomitant]
     Active Substance: LOPERAMIDE HYDROCHLORIDE
  30. ASPIRIN [Concomitant]
     Active Substance: ASPIRIN
  31. NEPHRO VITE RX [Concomitant]
     Active Substance: ASCORBIC ACID\BIOTIN\CALCIUM PANTOTHENATE\CYANOCOBALAMIN\FOLIC ACID\NIACINAMIDE\PYRIDOXINE HYDROCHLO
  32. SODIUM CITRATE [Concomitant]
     Active Substance: SODIUM CITRATE

REACTIONS (3)
  - Bronchospasm [Unknown]
  - Rash [Unknown]
  - Eosinophilia [Unknown]
